FAERS Safety Report 9257280 (Version 2)
Quarter: 2013Q2

REPORT INFORMATION
  Report Type: Spontaneous
  Country: US (occurrence: US)
  Receive Date: 20130426
  Receipt Date: 20130605
  Transmission Date: 20140414
  Serious: Yes (Other)
  Sender: FDA-Public Use
  Company Number: PHEH2013US009050

PATIENT
  Sex: Female

DRUGS (12)
  1. TEGRETOL-XR [Suspect]
     Dosage: 1 DF, BID
  2. HYDROCORTISONE [Suspect]
  3. COPAXONE [Concomitant]
     Dosage: 1 DF, QD
  4. VITAMIN B12 [Concomitant]
     Dosage: UNK UKN, UNK
  5. MOMETASONE FUROATE [Concomitant]
     Dosage: UNK UKN, UNK
  6. BENZONATATE [Concomitant]
  7. DIFLUCAN [Concomitant]
     Dosage: UNK UKN, UNK
  8. CALFOLEX [Concomitant]
     Dosage: UNK UKN, UNK
  9. CLOTRIMAZOLE [Concomitant]
     Dosage: UNK UKN, UNK
     Route: 061
  10. MOTRIN [Concomitant]
     Dosage: UNK UKN, UNK
  11. SYNTHROID [Concomitant]
     Dosage: UNK UKN, UNK
  12. MVI [Concomitant]

REACTIONS (1)
  - Central nervous system lesion [Unknown]
